FAERS Safety Report 16206763 (Version 1)
Quarter: 2019Q2

REPORT INFORMATION
  Report Type: Report from Study
  Country: US (occurrence: US)
  Receive Date: 20190417
  Receipt Date: 20190417
  Transmission Date: 20190711
  Serious: Yes (Hospitalization, Other)
  Sender: FDA-Public Use
  Company Number: PHEH2019US016184

PATIENT
  Sex: Male

DRUGS (1)
  1. ENTRESTO [Suspect]
     Active Substance: SACUBITRIL\VALSARTAN
     Indication: PRODUCT USED FOR UNKNOWN INDICATION
     Route: 048

REACTIONS (8)
  - Paralysis [Unknown]
  - Face injury [Unknown]
  - Atrial fibrillation [Unknown]
  - Heart rate increased [Unknown]
  - Facial bones fracture [Unknown]
  - Loss of consciousness [Unknown]
  - Gait disturbance [Unknown]
  - Movement disorder [Unknown]
